FAERS Safety Report 5132786-5 (Version None)
Quarter: 2006Q4

REPORT INFORMATION
  Report Type: 
  Country: None (occurrence: None)
  Receive Date: 20061023
  Receipt Date: 20061012
  Transmission Date: 20070319
  Serious: Yes (Hospitalization, Disabling)
  Sender: FDA-Public Use
  Company Number: CG-MERCK-0610USA10086

PATIENT
  Age: 46 Year
  Sex: Male

DRUGS (1)
  1. STROMECTOL [Suspect]
     Route: 048
     Dates: start: 20060130, end: 20060130

REACTIONS (9)
  - ARTHRALGIA [None]
  - COMA [None]
  - COUGH [None]
  - GAIT DISTURBANCE [None]
  - HEADACHE [None]
  - MUSCULOSKELETAL STIFFNESS [None]
  - OCULAR HYPERAEMIA [None]
  - PYREXIA [None]
  - URINARY INCONTINENCE [None]
